FAERS Safety Report 12073618 (Version 2)
Quarter: 2016Q2

REPORT INFORMATION
  Report Type: Spontaneous
  Country: US (occurrence: US)
  Receive Date: 20160212
  Receipt Date: 20160428
  Transmission Date: 20160815
  Serious: Yes (Death, Hospitalization, Other)
  Sender: FDA-Public Use
  Company Number: US-JNJFOC-20160205845

PATIENT
  Age: 39 Year
  Sex: Male

DRUGS (6)
  1. XARELTO [Suspect]
     Active Substance: RIVAROXABAN
     Indication: THROMBOSIS PROPHYLAXIS
     Dosage: 20 (UNIT UNSPECIFIED)
     Route: 048
     Dates: start: 201201, end: 20140206
  2. LASIX [Concomitant]
     Active Substance: FUROSEMIDE
     Indication: PRODUCT USED FOR UNKNOWN INDICATION
     Route: 065
  3. XARELTO [Suspect]
     Active Substance: RIVAROXABAN
     Indication: CEREBROVASCULAR ACCIDENT PROPHYLAXIS
     Dosage: 20 (UNIT UNSPECIFIED)
     Route: 048
     Dates: start: 201201, end: 20140206
  4. XARELTO [Suspect]
     Active Substance: RIVAROXABAN
     Indication: DEEP VEIN THROMBOSIS
     Dosage: 20 (UNIT UNSPECIFIED)
     Route: 048
     Dates: start: 201201, end: 20140206
  5. XARELTO [Suspect]
     Active Substance: RIVAROXABAN
     Indication: PULMONARY EMBOLISM
     Dosage: 20 (UNIT UNSPECIFIED)
     Route: 048
     Dates: start: 201201, end: 20140206
  6. XARELTO [Suspect]
     Active Substance: RIVAROXABAN
     Indication: ATRIAL FIBRILLATION
     Dosage: 20 (UNIT UNSPECIFIED)
     Route: 048
     Dates: start: 201201, end: 20140206

REACTIONS (4)
  - Cerebrovascular accident [Unknown]
  - Epistaxis [Unknown]
  - Cardiomyopathy [Fatal]
  - Arteriosclerosis coronary artery [Fatal]

NARRATIVE: CASE EVENT DATE: 20140128
